FAERS Safety Report 13978183 (Version 2)
Quarter: 2020Q3

REPORT INFORMATION
  Report Type: Report from Study
  Country: JP (occurrence: JP)
  Receive Date: 20170915
  Receipt Date: 20170918
  Transmission Date: 20201105
  Serious: Yes (Hospitalization)
  Sender: FDA-Public Use
  Company Number: JP-PFIZER INC-2017390353

PATIENT
  Age: 70 Year
  Sex: Male

DRUGS (28)
  1. CALONAL [Concomitant]
     Active Substance: ACETAMINOPHEN
     Dosage: 400.0MG AS REQUIRED
     Route: 048
     Dates: start: 20170902
  2. FILGRASTIM [Concomitant]
     Active Substance: FILGRASTIM
     Dosage: 75 UG, 1X/DAY
     Route: 058
     Dates: start: 20170902
  3. GLIMEPIRIDE. [Concomitant]
     Active Substance: GLIMEPIRIDE
     Indication: TYPE 2 DIABETES MELLITUS
     Dosage: 1 MG, 1X/DAY
     Route: 048
     Dates: start: 20170822
  4. BROTIZOLAM [Concomitant]
     Active Substance: BROTIZOLAM
     Dosage: 0.25 MG, UNK
     Route: 048
     Dates: start: 20170822
  5. TAKECAB [Concomitant]
     Active Substance: VONOPRAZAN FUMARATE
     Dosage: 10 MG, 1X/DAY
     Route: 048
     Dates: start: 20170829
  6. HUMULIN R [Concomitant]
     Active Substance: INSULIN HUMAN
     Indication: TYPE 2 DIABETES MELLITUS
     Dosage: 1.0IU AS REQUIRED
     Route: 058
     Dates: start: 20170822
  7. WHITE PETROLATUM [Concomitant]
     Active Substance: PETROLATUM
     Dosage: AS REQUIRED
     Route: 061
     Dates: start: 20170902
  8. GLYCERIN. [Concomitant]
     Active Substance: GLYCERIN
     Indication: PERIODONTITIS
     Dosage: AS REQUIRED
     Route: 061
     Dates: start: 20170825
  9. ETOPOSIDE. [Suspect]
     Active Substance: ETOPOSIDE
     Indication: SMALL CELL LUNG CANCER
     Dosage: 100.0MG/M2 ONCE/SINGLE ADMINISTRATION
     Route: 065
     Dates: start: 20170823, end: 20170823
  10. VILDAGLIPTIN [Concomitant]
     Active Substance: VILDAGLIPTIN
     Indication: TYPE 2 DIABETES MELLITUS
     Dosage: 50 MG, 1X/DAY
     Route: 048
  11. SENNOSIDE [Concomitant]
     Active Substance: SENNOSIDES
     Dosage: 24.0MG AS REQUIRED
     Route: 048
     Dates: start: 20170824
  12. ANTEBATE [Concomitant]
     Active Substance: BETAMETHASONE DIPROPIONATE
     Dosage: AS REQUIRED
     Route: 061
     Dates: start: 20170902
  13. DEXART [Concomitant]
     Active Substance: DEXAMETHASONE SODIUM PHOSPHATE
     Indication: PREMEDICATION
     Dosage: 13.2 MG, 1X/DAY
     Route: 042
     Dates: start: 20170823, end: 20170825
  14. TOUCHRON [Concomitant]
     Indication: SPINAL OSTEOARTHRITIS
     Dosage: 20 MG, 1X/DAY(TAPE)
     Route: 061
     Dates: start: 20170831
  15. AZULENE [Concomitant]
     Active Substance: AZULENE
     Indication: PERIODONTITIS
     Dosage: UNK UNK, AS NEEDED
     Route: 048
     Dates: start: 20170829
  16. HACHIAZULE [Concomitant]
     Indication: PERIODONTITIS
     Dosage: AS REQUIRED
     Route: 061
     Dates: start: 20170825
  17. MAGMITT [Concomitant]
     Active Substance: MAGNESIUM OXIDE
     Dosage: 330.0MG AS REQUIRED
     Route: 048
     Dates: start: 20170825
  18. HALIZON [Concomitant]
     Active Substance: AMPHOTERICIN B
     Indication: PERIODONTITIS
     Dosage: 300 MG, 3X/DAY
     Route: 048
     Dates: start: 20170829
  19. ALLELOCK [Concomitant]
     Active Substance: OLOPATADINE HYDROCHLORIDE
     Dosage: 5 MG, 2X/DAY
     Route: 048
     Dates: start: 20170902
  20. MAXIPIME [Concomitant]
     Active Substance: CEFEPIME HYDROCHLORIDE
     Dosage: 2 G, 2X/DAY
     Route: 042
     Dates: start: 20170902
  21. ETOPOSIDE. [Suspect]
     Active Substance: ETOPOSIDE
     Dosage: 100.0MG/M2 ONCE/SINGLE ADMINISTRATION
     Route: 065
     Dates: start: 20170825
  22. MEDI4736 [Suspect]
     Active Substance: DURVALUMAB
     Indication: SMALL CELL LUNG CANCER
     Dosage: 1500.0MG ONCE/SINGLE ADMINISTRATION
     Route: 042
     Dates: start: 20170823
  23. GRANISETRON [Concomitant]
     Active Substance: GRANISETRON
     Indication: PREMEDICATION
     Dosage: 3 MG, 1X/DAY
     Route: 042
     Dates: start: 20170823, end: 20170825
  24. TREMELIMUMAB. [Suspect]
     Active Substance: TREMELIMUMAB
     Indication: SMALL CELL LUNG CANCER
     Dosage: 75.0MG ONCE/SINGLE ADMINISTRATION
     Route: 042
     Dates: start: 20170823
  25. CARBOPLATIN. [Suspect]
     Active Substance: CARBOPLATIN
     Indication: SMALL CELL LUNG CANCER
     Dosage: 5 AUC
     Route: 065
     Dates: start: 20170823
  26. ETOPOSIDE. [Suspect]
     Active Substance: ETOPOSIDE
     Dosage: 100.0MG/M2 ONCE/SINGLE ADMINISTRATION
     Route: 065
     Dates: start: 20170824, end: 20170824
  27. METGLUCO [Concomitant]
     Active Substance: METFORMIN HYDROCHLORIDE
     Indication: TYPE 2 DIABETES MELLITUS
     Dosage: 250 MG, 2X/DAY
     Route: 048
     Dates: start: 20170824
  28. PRIMPERAN [Concomitant]
     Active Substance: METOCLOPRAMIDE HYDROCHLORIDE
     Dosage: 5.0MG AS REQUIRED
     Route: 048
     Dates: start: 20170827, end: 20170828

REACTIONS (1)
  - Febrile neutropenia [Recovering/Resolving]

NARRATIVE: CASE EVENT DATE: 20170902
